FAERS Safety Report 8243778-1 (Version None)
Quarter: 2012Q1

REPORT INFORMATION
  Report Type: 
  Country: None (occurrence: None)
  Receive Date: 20120329
  Receipt Date: 20111004
  Transmission Date: 20120608
  Serious: No
  Sender: FDA-Public Use
  Company Number: US-MYLANLABS-2011S1020785

PATIENT
  Age: 70 Year
  Sex: Male

DRUGS (4)
  1. EMSAM [Suspect]
     Dosage: Q DAY
     Route: 062
     Dates: start: 20110927
  2. LIPITOR [Concomitant]
     Indication: BLOOD CHOLESTEROL INCREASED
  3. LISINOPRIL [Concomitant]
     Indication: BLOOD PRESSURE INCREASED
  4. LAMOTRGINE [Concomitant]

REACTIONS (1)
  - BLOOD PRESSURE INCREASED [None]
